FAERS Safety Report 13006726 (Version 2)
Quarter: 2017Q2

REPORT INFORMATION
  Report Type: Spontaneous
  Country: JP (occurrence: JP)
  Receive Date: 20161207
  Receipt Date: 20170410
  Transmission Date: 20170830
  Serious: Yes (Death)
  Sender: FDA-Public Use
  Company Number: JP-BRACCO-010721

PATIENT
  Age: 68 Year
  Sex: Male

DRUGS (1)
  1. IOPAMIRON [Suspect]
     Active Substance: IOPAMIDOL
     Indication: COMPUTERISED TOMOGRAM
     Route: 042
     Dates: start: 20160911, end: 20160911

REACTIONS (3)
  - Anaphylactic reaction [Fatal]
  - Left ventricular failure [Fatal]
  - Embolism arterial [Fatal]

NARRATIVE: CASE EVENT DATE: 20160911
